FAERS Safety Report 4755632-8 (Version None)
Quarter: 2005Q3

REPORT INFORMATION
  Report Type: 
  Country: None (occurrence: None)
  Receive Date: 20050829
  Receipt Date: 20050815
  Transmission Date: 20060218
  Serious: Yes (Hospitalization)
  Sender: FDA-Public Use
  Company Number: 2005115297

PATIENT
  Age: 57 Year
  Sex: Male
  Weight: 65.7716 kg

DRUGS (1)
  1. LISTERINE (MENTHOL, METHYL SALICYLATE, EUCALYPTOL, THYMOL) [Suspect]
     Indication: ALCOHOLISM
     Dosage: APPROX 16 OZ OR MORE DAILY, ORAL
     Route: 048
     Dates: start: 20050701, end: 20050801

REACTIONS (6)
  - GASTROINTESTINAL DISORDER [None]
  - INTENTIONAL MISUSE [None]
  - INTESTINAL OBSTRUCTION [None]
  - OVERDOSE [None]
  - PAIN [None]
  - RENAL FAILURE [None]
